FAERS Safety Report 23136796 (Version 1)
Quarter: 2023Q4

REPORT INFORMATION
  Report Type: Spontaneous
  Country: GB (occurrence: GB)
  Receive Date: 20231102
  Receipt Date: 20231102
  Transmission Date: 20240110
  Serious: Yes (Hospitalization)
  Sender: FDA-Public Use
  Company Number: GB-PFIZER INC-PV202200062144

PATIENT
  Age: 63 Year
  Sex: Female
  Weight: 62.5 kg

DRUGS (6)
  1. CARBOPLATIN [Suspect]
     Active Substance: CARBOPLATIN
     Indication: Anal cancer
     Dosage: AUC 5, EVERY 3 WEEKS, FREQUENCY: 1, DURATION: 154 DAYS
     Route: 042
     Dates: start: 20220405, end: 20220905
  2. PACLITAXEL [Suspect]
     Active Substance: PACLITAXEL
     Indication: Anal cancer
     Dosage: 80 MG/M2, ON DAY 1, 8 AND 15 OF EACH 28-DAY CYCLE, FREQUENCY TIME: 1 CYCLICAL, DURATION: 154 DAYS
     Route: 042
     Dates: start: 20220405, end: 20220905
  3. INVESTIGATIONAL PRODUCT [Suspect]
     Active Substance: INVESTIGATIONAL PRODUCT
     Indication: Anal cancer
     Dosage: UNK, THERAPY END DATE: NOT ASKED
     Route: 042
     Dates: start: 20220405
  4. METHYLPREDNISOLONE [Suspect]
     Active Substance: METHYLPREDNISOLONE
     Indication: Product used for unknown indication
     Dosage: UNK, THERAPY END DATE: NOT ASKED
     Route: 065
     Dates: start: 20220827
  5. LANSOPRAZOLE [Concomitant]
     Active Substance: LANSOPRAZOLE
     Indication: Product used for unknown indication
     Dosage: UNK
     Dates: start: 20220822
  6. PREDNISOLONE [Concomitant]
     Active Substance: PREDNISOLONE
     Indication: Product used for unknown indication
     Dosage: UNK
     Dates: start: 20220822, end: 20220826

REACTIONS (1)
  - Lipase increased [Recovered/Resolved]

NARRATIVE: CASE EVENT DATE: 20220822
